FAERS Safety Report 9857028 (Version 2)
Quarter: 2014Q3

REPORT INFORMATION
  Report Type: Spontaneous
  Country: US (occurrence: US)
  Receive Date: 20140130
  Receipt Date: 20140811
  Transmission Date: 20150326
  Serious: Yes (Hospitalization, Other)
  Sender: FDA-Public Use
  Company Number: US-009507513-1401USA014228

PATIENT
  Sex: Female

DRUGS (1)
  1. NUVARING [Suspect]
     Active Substance: ETHINYL ESTRADIOL\ETONOGESTREL
     Indication: CONTRACEPTION
     Dosage: 0.12-0.015 MG/HR
     Route: 067

REACTIONS (7)
  - Gastrectomy [Unknown]
  - Insomnia [Unknown]
  - Cholecystectomy [Unknown]
  - Choking sensation [Recovered/Resolved]
  - Thrombophlebitis superficial [Unknown]
  - Pneumonia [Unknown]
  - Deep vein thrombosis [Unknown]

NARRATIVE: CASE EVENT DATE: 20080813
